FAERS Safety Report 6771836-7 (Version None)
Quarter: 2010Q2

REPORT INFORMATION
  Report Type: 
  Country: None (occurrence: None)
  Receive Date: 20100616
  Receipt Date: 20100611
  Transmission Date: 20101027
  Serious: Yes (Hospitalization)
  Sender: FDA-Public Use
  Company Number: DE-SANOFI-AVENTIS-2010SA029982

PATIENT
  Age: 75 Year
  Sex: Female

DRUGS (4)
  1. OXALIPLATIN [Suspect]
     Route: 041
     Dates: start: 20100512, end: 20100512
  2. FLUOROURACIL [Suspect]
     Dosage: DOSE REPORTED: 400/2400 MG/M2
     Route: 041
     Dates: start: 20100512, end: 20100512
  3. FOLINIC ACID [Suspect]
     Route: 041
     Dates: start: 20100512, end: 20100512
  4. CAPECITABINE [Suspect]
     Route: 048
     Dates: start: 20100512, end: 20100512

REACTIONS (4)
  - GASTRITIS [None]
  - HYPERTENSIVE CRISIS [None]
  - NAUSEA [None]
  - TACHYARRHYTHMIA [None]
